FAERS Safety Report 13629245 (Version 1)
Quarter: 2017Q2

REPORT INFORMATION
  Report Type: Spontaneous
  Country: US (occurrence: US)
  Receive Date: 20170531
  Receipt Date: 20170531
  Transmission Date: 20170830
  Serious: No
  Sender: FDA-Public Use
  Company Number: US-ASTELLAS-1125364

PATIENT
  Sex: Female

DRUGS (1)
  1. TARCEVA [Suspect]
     Active Substance: ERLOTINIB HYDROCHLORIDE
     Indication: SQUAMOUS CELL CARCINOMA OF LUNG
     Route: 048
     Dates: end: 20120824

REACTIONS (5)
  - Skin fissures [Unknown]
  - Stomatitis [Unknown]
  - Diarrhoea [Unknown]
  - Drug effect decreased [Unknown]
  - Neoplasm progression [Unknown]
